FAERS Safety Report 24126189 (Version 1)
Quarter: 2024Q3

REPORT INFORMATION
  Report Type: Other
  Country: US (occurrence: US)
  Receive Date: 20240723
  Receipt Date: 20240723
  Transmission Date: 20241016
  Serious: Yes (Hospitalization, Other)
  Sender: COREPHARMA
  Company Number: US-CorePharma LLC-2159474

PATIENT
  Age: 65 Year
  Sex: Female

DRUGS (3)
  1. LISINOPRIL [Suspect]
     Active Substance: LISINOPRIL
     Indication: Product used for unknown indication
     Route: 048
  2. AMLODIPINE [Suspect]
     Active Substance: AMLODIPINE BESYLATE
     Route: 048
  3. VALPROATE SODIUM [Suspect]
     Active Substance: VALPROATE SODIUM
     Route: 048

REACTIONS (8)
  - Vasoplegia syndrome [Recovering/Resolving]
  - Condition aggravated [Recovering/Resolving]
  - Intentional overdose [Unknown]
  - Somnolence [Recovering/Resolving]
  - Blood creatinine increased [Recovering/Resolving]
  - Leukocytosis [Recovering/Resolving]
  - Hyperglycaemia [Recovering/Resolving]
  - Lactic acidosis [Recovering/Resolving]
